FAERS Safety Report 15538108 (Version 2)
Quarter: 2018Q4

REPORT INFORMATION
  Report Type: Report from Study
  Country: GB (occurrence: GB)
  Receive Date: 20181022
  Receipt Date: 20181031
  Transmission Date: 20190205
  Serious: Yes (Death, Hospitalization)
  Sender: FDA-Public Use
  Company Number: GB-IPSEN BIOPHARMACEUTICALS, INC.-2018-15698

PATIENT
  Sex: Male

DRUGS (1)
  1. SOMATULINE AUTOGEL [Suspect]
     Active Substance: LANREOTIDE ACETATE
     Indication: PRODUCT USED FOR UNKNOWN INDICATION
     Route: 058
     Dates: start: 20170920

REACTIONS (2)
  - Death [Fatal]
  - General physical health deterioration [Unknown]
